FAERS Safety Report 9050231 (Version 2)
Quarter: 2013Q1

REPORT INFORMATION
  Report Type: Spontaneous
  Country: US (occurrence: US)
  Receive Date: 20130204
  Receipt Date: 20130305
  Transmission Date: 20140127
  Serious: No
  Sender: FDA-Public Use
  Company Number: US-AMGEN-USASP2013007263

PATIENT
  Sex: Female
  Weight: 66.67 kg

DRUGS (4)
  1. ENBREL [Suspect]
     Indication: PSORIATIC ARTHROPATHY
     Dosage: UNK
     Dates: end: 20121121
  2. ENBREL [Suspect]
     Indication: PSORIASIS
  3. TREXIMET [Concomitant]
     Dosage: UNK
  4. PROZAC [Concomitant]
     Dosage: UNK

REACTIONS (2)
  - Psoriatic arthropathy [Unknown]
  - Psoriasis [Unknown]
